FAERS Safety Report 5093913-1 (Version None)
Quarter: 2006Q3

REPORT INFORMATION
  Report Type: 
  Country: None (occurrence: None)
  Receive Date: 20060728
  Receipt Date: 20060612
  Transmission Date: 20061208
  Serious: No
  Sender: FDA-Public Use
  Company Number: 254018

PATIENT
  Age: 68 Year
  Sex: Male
  Weight: 89.8 kg

DRUGS (3)
  1. LEVEMIR [Suspect]
     Indication: INSULIN-REQUIRING TYPE II DIABETES MELLITUS
     Dosage: 15 IU, QD, SUBCUTANEOUS
     Route: 058
     Dates: start: 20060412
  2. AMARYL [Concomitant]
  3. METFORMIN HCL [Concomitant]

REACTIONS (3)
  - INJECTION SITE ERYTHEMA [None]
  - INJECTION SITE PRURITUS [None]
  - INJECTION SITE SWELLING [None]
